FAERS Safety Report 11281302 (Version 3)
Quarter: 2015Q4

REPORT INFORMATION
  Report Type: Spontaneous
  Country: IT (occurrence: IT)
  Receive Date: 20150717
  Receipt Date: 20151125
  Transmission Date: 20160304
  Serious: Yes (Hospitalization)
  Sender: FDA-Public Use
  Company Number: IT-FRESENIUS KABI-FK201503466

PATIENT
  Age: 79 Year
  Sex: Male

DRUGS (9)
  1. FLUOROURACIL. [Suspect]
     Active Substance: FLUOROURACIL
     Indication: RECTOSIGMOID CANCER STAGE IV
     Route: 042
     Dates: start: 20150413, end: 20150520
  2. ROPINIROLE. [Concomitant]
     Active Substance: ROPINIROLE
  3. AFLIBERCEPT [Suspect]
     Active Substance: AFLIBERCEPT
     Indication: RECTOSIGMOID CANCER STAGE IV
     Route: 042
     Dates: start: 20150413, end: 20150520
  4. SAMYR [Concomitant]
     Active Substance: METHIONINE
  5. LANSOPRAZOLE. [Concomitant]
     Active Substance: LANSOPRAZOLE
  6. IRINOTECAN (MANUFACTURER UNKNOWN) [Suspect]
     Active Substance: IRINOTECAN
     Indication: RECTOSIGMOID CANCER STAGE IV
     Route: 042
     Dates: start: 20150413, end: 20150520
  7. SODIUM LEVOFOLINATE [Suspect]
     Active Substance: LEVOLEUCOVORIN DISODIUM
     Indication: RECTOSIGMOID CANCER STAGE IV
     Route: 042
     Dates: start: 20150413, end: 20150520
  8. REPAGLINIDE. [Concomitant]
     Active Substance: REPAGLINIDE
  9. INSULIN GLARGINE [Concomitant]
     Active Substance: INSULIN GLARGINE

REACTIONS (1)
  - Arterial occlusive disease [Recovered/Resolved]

NARRATIVE: CASE EVENT DATE: 20150530
